FAERS Safety Report 8357325 (Version 2)
Quarter: 2013Q1

REPORT INFORMATION
  Report Type: Spontaneous
  Country: US (occurrence: US)
  Receive Date: 20120127
  Receipt Date: 20130121
  Transmission Date: 20140127
  Serious: Yes (Other)
  Sender: FDA-Public Use
  Company Number: US-BAYER-2012-008055

PATIENT
  Age: 31 Year
  Sex: Female

DRUGS (8)
  1. YAZ [Suspect]
     Indication: CONTRACEPTION
  2. ANTIPSYCHOTICS [Concomitant]
  3. ZOLOFT [Concomitant]
  4. CEPHALEXIN [Concomitant]
     Dosage: 250 MG, UNK
  5. DOXYCYCLINE [Concomitant]
     Dosage: 100 MG, UNK
  6. HYDROCODONE/ACETAMINOPHEN [Concomitant]
     Dosage: 7.5-500 MG
  7. IBUPROFEN [Concomitant]
     Dosage: 800 MG, UNK
  8. PROMETHAZINE [Concomitant]
     Dosage: 25 MG, UNK

REACTIONS (4)
  - Thrombophlebitis superficial [None]
  - Skin discolouration [None]
  - Pain in extremity [None]
  - Local swelling [None]
